FAERS Safety Report 4383556-7 (Version None)
Quarter: 2004Q2

REPORT INFORMATION
  Report Type: 
  Country: None (occurrence: None)
  Receive Date: 20040602
  Receipt Date: 20031001
  Transmission Date: 20050107
  Serious: Yes (Other)
  Sender: FDA-Public Use
  Company Number: US-JNJFOC-20040204953

PATIENT
  Sex: Female
  Weight: 158.759 kg

DRUGS (8)
  1. PROPULSID [Suspect]
     Indication: GASTROINTESTINAL DISORDER
     Dosage: 10 + 20 MG, 4 IN 1 DAY
     Dates: start: 19940101
  2. PROPULSID [Suspect]
     Indication: GASTROINTESTINAL DISORDER
     Dosage: 10 + 20 MG, 4 IN 1 DAY
     Dates: start: 19950201
  3. PROPULSID [Suspect]
     Indication: GASTROINTESTINAL DISORDER
     Dosage: 10 + 20 MG, 4 IN 1 DAY
     Dates: start: 19960101
  4. PROPULSID [Suspect]
     Indication: GASTROINTESTINAL DISORDER
     Dosage: 20 MG, 4 IN 1 DAY
     Dates: start: 19970301
  5. ELAVIL [Concomitant]
  6. PROZAC [Concomitant]
  7. INDERAL [Concomitant]
  8. LASIX [Concomitant]

REACTIONS (4)
  - AUTONOMIC NEUROPATHY [None]
  - ELECTROCARDIOGRAM QT CORRECTED INTERVAL PROLONGED [None]
  - HEART INJURY [None]
  - VAGUS NERVE DISORDER [None]
